FAERS Safety Report 4487851-2 (Version None)
Quarter: 2004Q4

REPORT INFORMATION
  Report Type: 
  Country: None (occurrence: None)
  Receive Date: 20041025
  Receipt Date: 20041014
  Transmission Date: 20050328
  Serious: Yes (Hospitalization, Other)
  Sender: FDA-Public Use
  Company Number: 2004078580

PATIENT
  Age: 74 Year
  Sex: Female
  Weight: 77.1115 kg

DRUGS (20)
  1. GLUCOTROL XL [Suspect]
     Indication: DIABETES MELLITUS
     Dosage: 5 MG (5 MG, 1 IN 1 D), ORAL
     Route: 048
  2. SALBUTAMOL SULFATE (SALBUTAMOL SULFATE) [Suspect]
     Indication: DYSPNOEA
     Dates: start: 20040101
  3. PARACETAMOL [Concomitant]
  4. AXOTAL [Concomitant]
  5. FUROSEMIDE [Concomitant]
  6. GABAPENTIN [Concomitant]
  7. ZAFIRLUKAST [Concomitant]
  8. TOLTERODINE TARTRATE [Concomitant]
  9. METOLAZONE [Concomitant]
  10. LOVASTATIN [Concomitant]
  11. AMLODIPINE BESYLATE [Concomitant]
  12. PANTOPRAZOLE [Concomitant]
  13. CARISOPRODOL [Concomitant]
  14. FENOFIBRATE [Concomitant]
  15. NORTRIPTYLINE HCL [Concomitant]
  16. CILOSTAZOL [Concomitant]
  17. LORATADINE [Concomitant]
  18. ESTROPIPATE [Concomitant]
  19. ALPRAZOLAM [Concomitant]
  20. TRAZODONE [Concomitant]

REACTIONS (10)
  - DIABETES MELLITUS INADEQUATE CONTROL [None]
  - DISEASE RECURRENCE [None]
  - LOSS OF CONSCIOUSNESS [None]
  - MIGRAINE [None]
  - NEUROPATHY [None]
  - RENAL DISORDER [None]
  - SEPSIS [None]
  - TREMOR [None]
  - UNEXPECTED THERAPEUTIC DRUG EFFECT [None]
  - URINARY TRACT INFECTION [None]
